FAERS Safety Report 4405208-7 (Version None)
Quarter: 2004Q3

REPORT INFORMATION
  Report Type: 
  Country: None (occurrence: None)
  Receive Date: 20040722
  Receipt Date: 20040722
  Transmission Date: 20050211
  Serious: Yes (Hospitalization)
  Sender: FDA-Public Use
  Company Number: None

PATIENT
  Age: 52 Year
  Sex: Female
  Weight: 74.3899 kg

DRUGS (1)
  1. CISPLATIN [Suspect]
     Indication: LARYNGEAL CANCER
     Dosage: 183 MG IV
     Route: 042
     Dates: start: 20040614, end: 20040706

REACTIONS (8)
  - AORTIC EMBOLUS [None]
  - AORTIC OCCLUSION [None]
  - ASTHENIA [None]
  - LIVEDO RETICULARIS [None]
  - OSTEOPOROSIS [None]
  - PARAESTHESIA [None]
  - PULSE ABNORMAL [None]
  - SPINAL OSTEOARTHRITIS [None]
